FAERS Safety Report 4804356-7 (Version None)
Quarter: 2005Q4

REPORT INFORMATION
  Report Type: 
  Country: None (occurrence: None)
  Receive Date: 20051014
  Receipt Date: 20050929
  Transmission Date: 20060501
  Serious: Yes (Other)
  Sender: FDA-Public Use
  Company Number: 2005-01821

PATIENT
  Age: 55 Year
  Sex: Female
  Weight: 68 kg

DRUGS (6)
  1. VELCADE [Suspect]
     Indication: MULTIPLE MYELOMA
     Dosage: 2.30 MG
     Dates: start: 20050101, end: 20050805
  2. KYTRIL [Concomitant]
  3. MEDROL [Concomitant]
  4. LOVENOX [Concomitant]
  5. DIOVAN [Concomitant]
  6. ZIAC [Concomitant]

REACTIONS (5)
  - DACRYOSTENOSIS ACQUIRED [None]
  - HYPERSENSITIVITY [None]
  - PERIORBITAL OEDEMA [None]
  - RASH ERYTHEMATOUS [None]
  - SWELLING [None]
